FAERS Safety Report 23659015 (Version 1)
Quarter: 2024Q1

REPORT INFORMATION
  Report Type: Spontaneous
  Country: US (occurrence: US)
  Receive Date: 20240321
  Receipt Date: 20240321
  Transmission Date: 20240410
  Serious: No
  Sender: FDA-Public Use
  Company Number: US-BRAEBURN-US-BRA-23-000968

PATIENT
  Sex: Female

DRUGS (2)
  1. BRIXADI [Suspect]
     Active Substance: BUPRENORPHINE
     Indication: Product used for unknown indication
     Dosage: 1 DOSAGE FORM, WEEKLY
     Route: 065
     Dates: start: 202310, end: 202311
  2. BRIXADI [Suspect]
     Active Substance: BUPRENORPHINE
     Dosage: 1 DOSAGE FORM, MONTHLY
     Route: 065
     Dates: start: 20231120

REACTIONS (6)
  - Withdrawal syndrome [Unknown]
  - Feeling abnormal [Unknown]
  - Nausea [Unknown]
  - Injection site injury [Unknown]
  - Wrong technique in product usage process [Recovered/Resolved]
  - Incorrect route of product administration [Recovered/Resolved]

NARRATIVE: CASE EVENT DATE: 20231001
